FAERS Safety Report 25316355 (Version 1)
Quarter: 2025Q2

REPORT INFORMATION
  Report Type: Report from Study
  Country: US (occurrence: US)
  Receive Date: 20250515
  Receipt Date: 20250515
  Transmission Date: 20250716
  Serious: Yes (Hospitalization)
  Sender: ALEXION PHARMACEUTICALS
  Company Number: US-ASTRAZENECA-202505USA009050US

PATIENT

DRUGS (1)
  1. OSIMERTINIB [Suspect]
     Active Substance: OSIMERTINIB
     Indication: Illness
     Dosage: 80 MILLIGRAM, QD

REACTIONS (3)
  - Cough [Unknown]
  - Deep vein thrombosis [Unknown]
  - Lung carcinoma cell type unspecified stage IV [Unknown]
